FAERS Safety Report 9656671 (Version 1)
Quarter: 2013Q4

REPORT INFORMATION
  Report Type: Spontaneous
  Country: FR (occurrence: None)
  Receive Date: 20131028
  Receipt Date: 20131028
  Transmission Date: 20140711
  Serious: Yes (Hospitalization)
  Sender: FDA-Public Use
  Company Number: 1919894

PATIENT
  Age: 66 Year
  Sex: Female

DRUGS (6)
  1. (CARBOPLATIN) [Suspect]
     Indication: OVARIAN CANCER
     Dosage: 400 MG MILLIGRAM(S), 1 DAY, INTRAVENOUS DRIP
     Route: 041
     Dates: start: 20100507, end: 20100507
  2. (PACLITAXEL EBEW) [Concomitant]
  3. (POLARAMINE) [Concomitant]
  4. (METHYLPREDNISOLONE MERCK) [Concomitant]
  5. (ZOPHREN) [Concomitant]
  6. (RANIPLEX /00550801) [Concomitant]

REACTIONS (4)
  - Malaise [None]
  - Loss of consciousness [None]
  - Enuresis [None]
  - Vomiting [None]
